FAERS Safety Report 16725394 (Version 1)
Quarter: 2019Q3

REPORT INFORMATION
  Report Type: Report from Study
  Country: None (occurrence: NZ)
  Receive Date: 20190821
  Receipt Date: 20190821
  Transmission Date: 20191005
  Serious: Yes (Other)
  Sender: FDA-Public Use
  Company Number: NZ-ABBVIE-19K-118-2893217-00

PATIENT
  Sex: Male

DRUGS (2)
  1. HUMIRA [Suspect]
     Active Substance: ADALIMUMAB
     Route: 058
     Dates: start: 201908
  2. HUMIRA [Suspect]
     Active Substance: ADALIMUMAB
     Indication: RHEUMATOID ARTHRITIS
     Route: 058
     Dates: start: 20190208, end: 201906

REACTIONS (4)
  - Scar [Recovered/Resolved]
  - Post procedural haemorrhage [Recovered/Resolved]
  - Psychiatric symptom [Unknown]
  - Hernia [Recovered/Resolved]

NARRATIVE: CASE EVENT DATE: 2019
